FAERS Safety Report 6191187-1 (Version None)
Quarter: 2009Q2

REPORT INFORMATION
  Report Type: 
  Country: None (occurrence: None)
  Receive Date: 20090513
  Receipt Date: 20090513
  Transmission Date: 20091009
  Serious: No
  Sender: FDA-Public Use
  Company Number: None

PATIENT
  Sex: Female
  Weight: 102.5129 kg

DRUGS (2)
  1. MELOXICAM [Suspect]
     Indication: ARTHRALGIA
     Dosage: 15 MG 1 QD PO
     Route: 048
     Dates: start: 20080604
  2. MELOXICAM [Suspect]
     Indication: ARTHRALGIA
     Dosage: 7.5 MG 1 QD PO
     Route: 048
     Dates: start: 20060831

REACTIONS (1)
  - DRUG INEFFECTIVE [None]
